FAERS Safety Report 10664965 (Version 1)
Quarter: 2014Q4

REPORT INFORMATION
  Report Type: Spontaneous
  Country: IT (occurrence: IT)
  Receive Date: 20141219
  Receipt Date: 20141219
  Transmission Date: 20150529
  Serious: Yes (Hospitalization, Other)
  Sender: FDA-Public Use
  Company Number: IT-TEVA-528934ISR

PATIENT
  Age: 90 Year
  Sex: Female

DRUGS (2)
  1. PROPAFENONE. [Suspect]
     Active Substance: PROPAFENONE
     Dosage: 650 MILLIGRAM DAILY;
     Route: 065
  2. PROMAZINE [Suspect]
     Active Substance: PROMAZINE
     Dosage: 10 MILLIGRAM DAILY;
     Route: 065

REACTIONS (3)
  - Electrocardiogram QRS complex prolonged [Recovering/Resolving]
  - Left ventricular dysfunction [Unknown]
  - Electrocardiogram QT prolonged [Unknown]
